FAERS Safety Report 15130034 (Version 1)
Quarter: 2018Q3

REPORT INFORMATION
  Report Type: Report from Study
  Country: FR (occurrence: FR)
  Receive Date: 20180711
  Receipt Date: 20180711
  Transmission Date: 20181010
  Serious: Yes (Hospitalization)
  Sender: FDA-Public Use
  Company Number: FR-PFIZER INC-2018271666

PATIENT
  Age: 77 Year
  Sex: Female
  Weight: 85 kg

DRUGS (8)
  1. AMLOR [Concomitant]
     Active Substance: AMLODIPINE BESYLATE
  2. LOVENOX [Concomitant]
     Active Substance: ENOXAPARIN SODIUM
  3. MYLOTARG [Suspect]
     Active Substance: GEMTUZUMAB OZOGAMICIN
     Indication: ACUTE MYELOID LEUKAEMIA
     Dosage: 5 MG, DAY 1
     Dates: start: 20180522, end: 20180522
  4. CORDARONE [Concomitant]
     Active Substance: AMIODARONE HYDROCHLORIDE
  5. MYLOTARG [Suspect]
     Active Substance: GEMTUZUMAB OZOGAMICIN
     Dosage: 5 MG, DAY 4
     Dates: start: 20180525, end: 20180525
  6. CYTARABINE. [Concomitant]
     Active Substance: CYTARABINE
     Indication: ACUTE MYELOID LEUKAEMIA
     Dosage: DAILY, AS INDUCTION COURSE, D 1?7
     Dates: start: 20180522, end: 20180528
  7. BISOCE [Concomitant]
     Active Substance: BISOPROLOL
  8. LASILIX /00032601/ [Concomitant]
     Active Substance: FUROSEMIDE

REACTIONS (1)
  - Pleural effusion [Not Recovered/Not Resolved]

NARRATIVE: CASE EVENT DATE: 20180623
